FAERS Safety Report 25362845 (Version 1)
Quarter: 2025Q2

REPORT INFORMATION
  Report Type: Spontaneous
  Country: US (occurrence: None)
  Receive Date: 20250525
  Receipt Date: 20250525
  Transmission Date: 20250717
  Serious: Yes (Other)
  Sender: FDA-CTU
  Company Number: None

PATIENT
  Age: 53 Year
  Sex: Female
  Weight: 74.25 kg

DRUGS (2)
  1. SEMAGLUTIDE [Suspect]
     Active Substance: SEMAGLUTIDE
     Indication: Weight control
     Dosage: 1 INJECTION(S) ONCE A WEEK SUBCUTANEOUS
     Route: 058
     Dates: start: 20250524, end: 20250524
  2. LOVENOX [Concomitant]
     Active Substance: ENOXAPARIN SODIUM

REACTIONS (10)
  - Diarrhoea [None]
  - Diarrhoea [None]
  - Nausea [None]
  - Vomiting [None]
  - Asthenia [None]
  - Product substitution issue [None]
  - Therapeutic response changed [None]
  - Impaired work ability [None]
  - Loss of personal independence in daily activities [None]
  - Bedridden [None]

NARRATIVE: CASE EVENT DATE: 20250524
